FAERS Safety Report 11264959 (Version 2)
Quarter: 2015Q3

REPORT INFORMATION
  Report Type: Spontaneous
  Country: AU (occurrence: AU)
  Receive Date: 20150713
  Receipt Date: 20150723
  Transmission Date: 20151125
  Serious: Yes (Other)
  Sender: FDA-Public Use
  Company Number: AU-BAYER-2015-371863

PATIENT
  Age: 38 Year
  Sex: Female

DRUGS (1)
  1. MIRENA [Suspect]
     Active Substance: LEVONORGESTREL
     Dosage: UNK UNK, CONT
     Route: 015

REACTIONS (7)
  - Tachycardia [Recovered/Resolved]
  - Abscess rupture [Recovered/Resolved]
  - Peritonitis [Recovered/Resolved]
  - Ascites [Recovered/Resolved]
  - Device use error [None]
  - Tubo-ovarian abscess [Recovered/Resolved]
  - Hypotension [Recovered/Resolved]
